FAERS Safety Report 7708844-5 (Version None)
Quarter: 2011Q3

REPORT INFORMATION
  Report Type: 
  Country: None (occurrence: None)
  Receive Date: 20110825
  Receipt Date: 20110817
  Transmission Date: 20111222
  Serious: Yes (Hospitalization)
  Sender: FDA-Public Use
  Company Number: US-US-EMD SERONO, INC.-7074691

PATIENT
  Sex: Male

DRUGS (4)
  1. IMURAN [Concomitant]
     Indication: COLITIS ULCERATIVE
  2. REBIF [Suspect]
     Dates: start: 20080201
  3. REBIF [Suspect]
     Indication: MULTIPLE SCLEROSIS
     Dates: start: 20050801
  4. REBIF [Suspect]
     Dates: start: 20110318, end: 20110401

REACTIONS (2)
  - AGRANULOCYTOSIS [None]
  - PNEUMONIA [None]
